FAERS Safety Report 5484729-2 (Version None)
Quarter: 2007Q4

REPORT INFORMATION
  Report Type: 
  Country: None (occurrence: None)
  Receive Date: 20071010
  Receipt Date: 20071003
  Transmission Date: 20080405
  Serious: Yes (Life-Threatening)
  Sender: FDA-Public Use
  Company Number: DSU-2007-00692

PATIENT
  Age: 55 Year
  Sex: Female

DRUGS (3)
  1. OLMESARTAN MEDOXOMIL + HYDROCHLOROTHIAZIDE (HYDROCHLOROTHIAZIDE, OLMES [Suspect]
     Indication: HYPERTENSION
     Dosage: 20/12.5 MG (QD), PER ORAL
     Route: 048
  2. NORVAS (AMLODIPINE BESILATE) (AMLODIPINE BESILATE) [Concomitant]
  3. METFORMINA (METFORMIN) (METFORMIN) [Concomitant]

REACTIONS (1)
  - HYPERTENSIVE CRISIS [None]
